FAERS Safety Report 9344913 (Version 1)
Quarter: 2013Q2

REPORT INFORMATION
  Report Type: Spontaneous
  Country: PL (occurrence: PL)
  Receive Date: 20130612
  Receipt Date: 20130612
  Transmission Date: 20140414
  Serious: Yes (Other)
  Sender: FDA-Public Use
  Company Number: PL-BRISTOL-MYERS SQUIBB COMPANY-18993345

PATIENT
  Sex: Male

DRUGS (1)
  1. DASATINIB [Suspect]

REACTIONS (2)
  - Lymphocytosis [Recovered/Resolved]
  - Pyrexia [Recovered/Resolved]
